FAERS Safety Report 14590487 (Version 1)
Quarter: 2018Q1

REPORT INFORMATION
  Report Type: Spontaneous
  Country: US (occurrence: US)
  Receive Date: 20180301
  Receipt Date: 20180301
  Transmission Date: 20180509
  Serious: Yes (Hospitalization)
  Sender: FDA-Public Use
  Company Number: None

PATIENT
  Age: 58 Year
  Sex: Female

DRUGS (1)
  1. POMALYST [Suspect]
     Active Substance: POMALIDOMIDE
     Indication: PLASMA CELL MYELOMA
     Route: 048
     Dates: start: 20171227

REACTIONS (6)
  - Pneumonia [None]
  - Respiratory distress [None]
  - Staphylococcal infection [None]
  - Influenza [None]
  - Sepsis [None]
  - Pseudomonas infection [None]

NARRATIVE: CASE EVENT DATE: 20180209
